FAERS Safety Report 13894137 (Version 1)
Quarter: 2017Q3

REPORT INFORMATION
  Report Type: Spontaneous
  Country: US (occurrence: None)
  Receive Date: 20170816
  Receipt Date: 20170816
  Transmission Date: 20171127
  Serious: Yes (Death)
  Sender: FDA-Public Use
  Company Number: None

PATIENT
  Age: 81 Year
  Sex: Male

DRUGS (10)
  1. LEVOTHYROXINE. [Concomitant]
     Active Substance: LEVOTHYROXINE
  2. EYLEA [Suspect]
     Active Substance: AFLIBERCEPT
     Indication: DIABETIC RETINOPATHY
     Dosage: ?          OTHER ROUTE:INTRAVITREOUSLY?
     Route: 030
     Dates: start: 20170531
  3. HUMULIN NOS [Concomitant]
     Active Substance: INSULIN HUMAN
  4. ALLOPURINOL. [Concomitant]
     Active Substance: ALLOPURINOL
  5. METOPROLOL. [Concomitant]
     Active Substance: METOPROLOL
  6. SIMVASTATIN. [Concomitant]
     Active Substance: SIMVASTATIN
  7. EUFLEXXA [Suspect]
     Active Substance: HYALURONATE SODIUM
     Indication: OSTEOARTHRITIS
     Route: 058
     Dates: start: 20161122
  8. CALCITROL [Concomitant]
     Active Substance: CALCITRIOL
  9. FUROSEMIDE. [Concomitant]
     Active Substance: FUROSEMIDE
  10. GLYBURIDE. [Concomitant]
     Active Substance: GLYBURIDE

REACTIONS (1)
  - Death [None]

NARRATIVE: CASE EVENT DATE: 20170713
